FAERS Safety Report 7901879-9 (Version None)
Quarter: 2011Q4

REPORT INFORMATION
  Report Type: 
  Country: None (occurrence: None)
  Receive Date: 20111108
  Receipt Date: 20111028
  Transmission Date: 20120403
  Serious: Yes (Disabling)
  Sender: FDA-Public Use
  Company Number: US-MERCK-1103USA03607

PATIENT
  Sex: Male

DRUGS (3)
  1. CITALOPRAM HYDROBROMIDE [Concomitant]
     Route: 065
     Dates: start: 20010101
  2. PROPECIA [Suspect]
     Route: 048
     Dates: end: 20100501
  3. PROPECIA [Suspect]
     Indication: ALOPECIA
     Route: 048
     Dates: start: 20080101, end: 20090101

REACTIONS (3)
  - EMOTIONAL DISTRESS [None]
  - LIBIDO DECREASED [None]
  - SEMEN VOLUME DECREASED [None]
